FAERS Safety Report 12249049 (Version 2)
Quarter: 2016Q4

REPORT INFORMATION
  Report Type: Report from Study
  Country: US (occurrence: US)
  Receive Date: 20160408
  Receipt Date: 20161010
  Transmission Date: 20170207
  Serious: Yes (Other)
  Sender: FDA-Public Use
  Company Number: US-MALLINCKRODT-T201505586

PATIENT
  Sex: Female

DRUGS (4)
  1. REPOSITORY CORTICOTROPIN INJECTION [Suspect]
     Active Substance: CORTICOTROPIN
     Dosage: 40 UNITS (0.5ML) TWICE A WEEK
     Route: 058
     Dates: start: 2016, end: 201603
  2. INSULIN [Concomitant]
     Active Substance: INSULIN NOS
  3. REPOSITORY CORTICOTROPIN INJECTION [Suspect]
     Active Substance: CORTICOTROPIN
     Indication: PROTEINURIA
     Dosage: 40 UNITS (0.5ML) TWICE A WEEK
     Route: 058
     Dates: start: 20150928, end: 20160128
  4. PROCRIT [Concomitant]
     Active Substance: ERYTHROPOIETIN

REACTIONS (6)
  - Oedema peripheral [Not Recovered/Not Resolved]
  - Acute kidney injury [Not Recovered/Not Resolved]
  - Blood pressure increased [Recovering/Resolving]
  - Unevaluable event [Unknown]
  - Therapeutic response unexpected [Not Recovered/Not Resolved]
  - Blood glucose increased [Recovering/Resolving]
